FAERS Safety Report 23889218 (Version 1)
Quarter: 2024Q2

REPORT INFORMATION
  Report Type: Spontaneous
  Country: IT (occurrence: IT)
  Receive Date: 20240523
  Receipt Date: 20240523
  Transmission Date: 20240715
  Serious: Yes (Hospitalization)
  Sender: FDA-Public Use
  Company Number: IT-NOVPHSZ-PHHY2019IT048972

PATIENT
  Age: 43 Year
  Sex: Male

DRUGS (2)
  1. TEGRETOL [Suspect]
     Active Substance: CARBAMAZEPINE
     Indication: Anxiety
     Dosage: 8 G, UNK (TOTAL)
     Route: 048
     Dates: start: 20190219, end: 20190219
  2. CLOBAZAM [Suspect]
     Active Substance: CLOBAZAM
     Indication: Anxiety
     Dosage: 300 MG, UNK (TOTAL)
     Route: 048
     Dates: start: 20190219

REACTIONS (3)
  - Substance abuse [Recovering/Resolving]
  - Somnolence [Recovering/Resolving]
  - Anxiety [Recovering/Resolving]

NARRATIVE: CASE EVENT DATE: 20190219
